FAERS Safety Report 24052292 (Version 1)
Quarter: 2024Q3

REPORT INFORMATION
  Report Type: Spontaneous
  Country: UG (occurrence: UG)
  Receive Date: 20240704
  Receipt Date: 20240704
  Transmission Date: 20241017
  Serious: Yes (Hospitalization, Other)
  Sender: PRINSTON PHARMACEUTICAL
  Company Number: UG-PRINSTON PHARMACEUTICAL INC.-2024PRN00259

PATIENT
  Age: 19 Year
  Sex: Female

DRUGS (2)
  1. ACYCLOVIR [Suspect]
     Active Substance: ACYCLOVIR
     Indication: Anogenital warts
     Dosage: 400 MG, 3X/DAY
     Route: 048
     Dates: start: 2019, end: 2019
  2. EFAVIRENZ\LAMIVUDINE\TENOFOVIR DISOPROXIL FUMARATE [Suspect]
     Active Substance: EFAVIRENZ\LAMIVUDINE\TENOFOVIR DISOPROXIL FUMARATE
     Indication: HIV infection
     Dosage: UNK

REACTIONS (2)
  - Anaemia megaloblastic [Recovered/Resolved]
  - Malaria [Recovered/Resolved]

NARRATIVE: CASE EVENT DATE: 20191001
